FAERS Safety Report 19668672 (Version 1)
Quarter: 2021Q3

REPORT INFORMATION
  Report Type: Spontaneous
  Country: PT (occurrence: PT)
  Receive Date: 20210806
  Receipt Date: 20210806
  Transmission Date: 20211014
  Serious: Yes (Life-Threatening, Hospitalization)
  Sender: FDA-Public Use
  Company Number: PT-MYLANLABS-2021M1048585

PATIENT
  Age: 67 Year
  Sex: Male

DRUGS (12)
  1. LEPICORTINOLO                      /00016201/ [Concomitant]
     Active Substance: PREDNISOLONE
     Dosage: 5 MILLIGRAM, QD (5 MG AO PEQUENO ALMO?O)
  2. FUROSEMIDE. [Concomitant]
     Active Substance: FUROSEMIDE
     Dosage: JEJUM
  3. ZYLORIC [Concomitant]
     Active Substance: ALLOPURINOL
     Dosage: UNK
  4. TRANSTEC [Concomitant]
     Active Substance: BUPRENORPHINE
     Dosage: 1/2 PENSO CADA 3.5 DIAS (35 ?G/H)
  5. RAMIPRIL. [Concomitant]
     Active Substance: RAMIPRIL
     Dosage: UNK
  6. SIMVASTATIN. [Concomitant]
     Active Substance: SIMVASTATIN
     Dosage: UNK
  7. SIMPONI [Concomitant]
     Active Substance: GOLIMUMAB
     Dosage: 50 MILLIGRAM, MONTHLY/ 1 X MES (AO DIA 30)
  8. FOSAVANCE [Concomitant]
     Active Substance: ALENDRONATE SODIUM\CHOLECALCIFEROL
     Dosage: UNK
  9. PANTOPRAZOLE [Concomitant]
     Active Substance: PANTOPRAZOLE
     Dosage: UNK
  10. BISOPROLOL [Suspect]
     Active Substance: BISOPROLOL
     Indication: AORTIC VALVE INCOMPETENCE
     Dosage: 5 MILLIGRAM, QD
     Route: 048
     Dates: start: 20140213, end: 20210128
  11. FOLICIL [Concomitant]
     Active Substance: FOLIC ACID
     Dosage: UNK
  12. METEX                              /00113802/ [Concomitant]
     Active Substance: METHOTREXATE SODIUM
     Dosage: 20 MILLIGRAM, QW

REACTIONS (2)
  - Bradycardia [Recovered/Resolved]
  - Atrioventricular block complete [Recovered/Resolved]

NARRATIVE: CASE EVENT DATE: 20210128
